FAERS Safety Report 15191813 (Version 1)
Quarter: 2018Q3

REPORT INFORMATION
  Report Type: Spontaneous
  Country: US (occurrence: US)
  Receive Date: 20180626
  Receipt Date: 20180626
  Transmission Date: 20181010
  Serious: Yes (Disabling)
  Sender: FDA-Public Use
  Company Number: None

PATIENT
  Age: 22 Year
  Sex: Male
  Weight: 67.5 kg

DRUGS (2)
  1. FLUTICASONE PROPIONATE NASAL SPRAY USP 50MCG [Suspect]
     Active Substance: FLUTICASONE PROPIONATE
  2. KEPPRA [Concomitant]
     Active Substance: LEVETIRACETAM

REACTIONS (2)
  - Skin irritation [None]
  - Urticaria [None]

NARRATIVE: CASE EVENT DATE: 20171212
